FAERS Safety Report 6917314-3 (Version None)
Quarter: 2010Q3

REPORT INFORMATION
  Report Type: 
  Country: None (occurrence: None)
  Receive Date: 20100805
  Receipt Date: 20100730
  Transmission Date: 20110219
  Serious: Yes (Other)
  Sender: FDA-Public Use
  Company Number: MSTR-NO-1007S-0267

PATIENT
  Age: 74 Year
  Sex: Male

DRUGS (1)
  1. METASTRON [Suspect]
     Indication: METASTATIC PAIN
     Dosage: SINGLE DOSE, I.V.
     Route: 042
     Dates: start: 20090326, end: 20090326

REACTIONS (3)
  - ANAEMIA [None]
  - DISEASE PROGRESSION [None]
  - PROSTATE CANCER [None]
